FAERS Safety Report 9597151 (Version 1)
Quarter: 2013Q4

REPORT INFORMATION
  Report Type: Spontaneous
  Country: CA (occurrence: CA)
  Receive Date: 20131004
  Receipt Date: 20131004
  Transmission Date: 20140711
  Serious: Yes (Other)
  Sender: FDA-Public Use
  Company Number: CA-ASTRAZENECA-2013SE72960

PATIENT
  Sex: Female

DRUGS (3)
  1. TAMOXIFEN [Suspect]
     Route: 048
  2. ZOLADEX [Suspect]
     Route: 058
  3. LETROZOLE [Suspect]

REACTIONS (2)
  - Neoplasm progression [Unknown]
  - Breast cancer [Unknown]
